FAERS Safety Report 9978840 (Version 1)
Quarter: 2014Q1

REPORT INFORMATION
  Report Type: Report from Study
  Country: US (occurrence: US)
  Receive Date: 20140306
  Receipt Date: 20140306
  Transmission Date: 20141002
  Serious: No
  Sender: FDA-Public Use
  Company Number: US-ABBVIE-13P-163-1168657-00

PATIENT
  Age: 63 Year
  Sex: Female
  Weight: 73.55 kg

DRUGS (5)
  1. HUMIRA [Suspect]
     Indication: RHEUMATOID ARTHRITIS
     Route: 058
     Dates: end: 201302
  2. HUMIRA [Suspect]
     Indication: CROHN^S DISEASE
     Route: 058
     Dates: start: 201303
  3. PREVACID [Concomitant]
     Indication: GASTRIC DISORDER
  4. SYMAX [Concomitant]
     Indication: CROHN^S DISEASE
  5. ARAVA [Concomitant]
     Indication: RHEUMATOID ARTHRITIS

REACTIONS (3)
  - Sinusitis [Recovered/Resolved]
  - Vulvovaginal mycotic infection [Recovered/Resolved]
  - Arthralgia [Recovered/Resolved]
